FAERS Safety Report 6004763-3 (Version None)
Quarter: 2008Q4

REPORT INFORMATION
  Report Type: 
  Country: None (occurrence: None)
  Receive Date: 20081216
  Receipt Date: 20081204
  Transmission Date: 20090506
  Serious: Yes (Hospitalization)
  Sender: FDA-Public Use
  Company Number: US-PFIZER INC-2008067346

PATIENT
  Sex: Male
  Weight: 126.98 kg

DRUGS (23)
  1. BLINDED *PLACEBO [Suspect]
     Indication: OSTEOARTHRITIS
     Dosage: FREQ:TID   INTERVAL:DAILY
     Route: 048
     Dates: start: 20070723
  2. CELECOXIB [Suspect]
     Indication: OSTEOARTHRITIS
     Dosage: FREQ:TID   INTERVAL:DAILY
     Route: 048
     Dates: start: 20070723
  3. BLINDED IBUPROFEN [Suspect]
     Indication: OSTEOARTHRITIS
     Dosage: FREQ:TID   INTERVAL:DAILY
     Route: 048
     Dates: start: 20070723
  4. BLINDED NAPROXEN [Suspect]
     Indication: OSTEOARTHRITIS
     Dosage: FREQ:TID   INTERVAL:DAILY
     Route: 048
     Dates: start: 20070723
  5. BLINDED *PLACEBO [Suspect]
     Indication: RHEUMATOID ARTHRITIS
  6. CELECOXIB [Suspect]
     Indication: RHEUMATOID ARTHRITIS
  7. BLINDED IBUPROFEN [Suspect]
     Indication: RHEUMATOID ARTHRITIS
  8. BLINDED NAPROXEN [Suspect]
     Indication: RHEUMATOID ARTHRITIS
  9. NEXIUM [Concomitant]
     Dosage: 40 MG, 1X/DAY
     Route: 048
     Dates: start: 20070725
  10. TRAMADOL HCL [Concomitant]
     Dosage: PRN
     Route: 048
     Dates: start: 20071115
  11. CYCLOBENZAPRINE HCL [Concomitant]
     Dosage: 10 MG, 1X/DAY
     Route: 048
     Dates: start: 20080201
  12. MORPHINE SULFATE [Concomitant]
     Dosage: PRN
     Route: 048
     Dates: start: 20080201
  13. LOTREL [Concomitant]
     Dosage: 10/40MG,DAILY
     Route: 048
     Dates: start: 20010101
  14. TOPROL-XL [Concomitant]
     Dosage: 100 MG, 1X/DAY
     Route: 048
     Dates: start: 19990301
  15. ATORVASTATIN [Concomitant]
     Dosage: 40 MG, 1X/DAY
     Route: 048
     Dates: start: 19990301
  16. POTASSIUM CHLORIDE [Concomitant]
     Dosage: 99 MEQ, 2X/DAY
     Route: 048
     Dates: start: 19850101
  17. MULTI-VITAMINS [Concomitant]
     Dosage: 500 MG, 1X/DAY
     Route: 048
     Dates: start: 19850101
  18. FISH OIL [Concomitant]
     Dosage: 2000 MG, 1X/DAY
     Route: 048
     Dates: start: 20040301
  19. CLOPIDOGREL [Concomitant]
     Dosage: 75 MG, 1X/DAY
     Route: 048
     Dates: start: 20010601
  20. HYDROCODONE BITARTRATE + ACETAMINOPHEN [Concomitant]
     Dosage: 500/5MG,PRN
     Route: 048
     Dates: start: 19990301
  21. METOLAZONE [Concomitant]
     Dosage: 800 MG, AS NEEDED
     Route: 048
     Dates: start: 20070601
  22. NITROGLYCERIN [Concomitant]
     Dosage: 0.4 MG, AS NEEDED
     Route: 060
     Dates: start: 19990101
  23. CALCIUM MAGNESIUM ZINC [Concomitant]
     Dosage: DAILY
     Route: 048
     Dates: start: 19850101

REACTIONS (2)
  - SPINAL NERVE STIMULATOR IMPLANTATION [None]
  - WOUND DECOMPOSITION [None]
